FAERS Safety Report 4753879-8 (Version None)
Quarter: 2005Q3

REPORT INFORMATION
  Report Type: 
  Country: None (occurrence: None)
  Receive Date: 20050825
  Receipt Date: 20050816
  Transmission Date: 20060218
  Serious: Yes (Life-Threatening)
  Sender: FDA-Public Use
  Company Number: 216609

PATIENT
  Sex: Female

DRUGS (3)
  1. AVASTIN [Suspect]
     Indication: BREAST CANCER METASTATIC
     Dates: start: 20050630, end: 20050714
  2. HERCEPTIN [Suspect]
     Indication: BREAST CANCER METASTATIC
  3. CARBOPLATIN [Concomitant]

REACTIONS (1)
  - INTESTINAL PERFORATION [None]
